FAERS Safety Report 13440910 (Version 1)
Quarter: 2017Q2

REPORT INFORMATION
  Report Type: Spontaneous
  Country: IT (occurrence: IT)
  Receive Date: 20170413
  Receipt Date: 20170413
  Transmission Date: 20170830
  Serious: Yes (Other)
  Sender: FDA-Public Use
  Company Number: DE-ASTRAZENECA-2017SE27369

PATIENT
  Age: 15032 Day
  Sex: Male

DRUGS (7)
  1. PARACETAMOL [Suspect]
     Active Substance: ACETAMINOPHEN
     Dosage: 2.0G ONCE/SINGLE ADMINISTRATION
     Route: 048
     Dates: start: 20161102, end: 20161102
  2. OMEPRAZOLE. [Suspect]
     Active Substance: OMEPRAZOLE
     Dosage: 337 UNKNOWN
     Route: 048
  3. NEXIUM [Suspect]
     Active Substance: ESOMEPRAZOLE MAGNESIUM
     Route: 048
     Dates: start: 20161103, end: 20161103
  4. IBIFEN [Suspect]
     Active Substance: KETOPROFEN
     Indication: HYPERTENSION
     Route: 048
     Dates: start: 20161103, end: 20161103
  5. LASIX [Suspect]
     Active Substance: FUROSEMIDE
     Indication: HYPERTENSION
     Route: 048
     Dates: start: 20161102, end: 20161102
  6. NORVASC [Suspect]
     Active Substance: AMLODIPINE BESYLATE
     Indication: HYPERTENSION
     Route: 048
     Dates: start: 20161102, end: 20161102
  7. OLMESARTAN MEDOXOMIL. [Suspect]
     Active Substance: OLMESARTAN MEDOXOMIL
     Indication: HYPERTENSION
     Route: 048
     Dates: start: 20161102, end: 20161102

REACTIONS (6)
  - Alanine aminotransferase increased [Unknown]
  - Hypersensitivity [Unknown]
  - Drug ineffective [Unknown]
  - Hypertension [Unknown]
  - Headache [Unknown]
  - Product use issue [Unknown]

NARRATIVE: CASE EVENT DATE: 20161102
